FAERS Safety Report 7607546-3 (Version None)
Quarter: 2011Q3

REPORT INFORMATION
  Report Type: 
  Country: None (occurrence: None)
  Receive Date: 20110713
  Receipt Date: 20110526
  Transmission Date: 20111222
  Serious: No
  Sender: FDA-Public Use
  Company Number: US-BAYER-2011-047145

PATIENT
  Sex: Female

DRUGS (3)
  1. ALEVE (CAPLET) [Suspect]
     Indication: PAIN
     Dosage: CONSUMER TOOK THE THIRD SIX HOURS AFTER TAKING THE FIRST TWO TABLETS. BOTTLE COUNT 24S
     Route: 048
     Dates: start: 20110523, end: 20110523
  2. CALCIUM [CALCIUM] [Concomitant]
  3. VITAMINS NOS [Concomitant]

REACTIONS (1)
  - PAIN [None]
